FAERS Safety Report 8103852-7 (Version None)
Quarter: 2012Q1

REPORT INFORMATION
  Report Type: 
  Country: None (occurrence: None)
  Receive Date: 20120127
  Receipt Date: 20120118
  Transmission Date: 20120608
  Serious: Yes (Hospitalization, Other)
  Sender: FDA-Public Use
  Company Number: 2011HGS-003039

PATIENT
  Age: 35 Year
  Sex: Female
  Weight: 56.6996 kg

DRUGS (13)
  1. QUINAPRIL [Concomitant]
  2. MEPRON [Concomitant]
  3. CELLCEPT [Concomitant]
  4. MULTIVITAMIN (VIGRAN) (ERGOCALCIFEROL, ASCORBIC ACID, PYRIDOXINE HYDRO [Concomitant]
  5. SENNA LAXATIVE (SENNOSIDE A+B) [Concomitant]
  6. STOOL SOFTENER (DOCUSATE SODIUM) [Concomitant]
  7. CRESTOR [Concomitant]
  8. PREDNISONE [Concomitant]
  9. FISH OIL [Concomitant]
  10. BENLYSTA [Suspect]
     Indication: SYSTEMIC LUPUS ERYTHEMATOSUS
     Dosage: 612 MG, 1 IN 28 D, INTRAVENOUS DRIP
     Route: 041
     Dates: start: 20110820, end: 20111021
  11. BENLYSTA [Suspect]
     Indication: LUPUS ENDOCARDITIS
     Dosage: 612 MG, 1 IN 28 D, INTRAVENOUS DRIP
     Route: 041
     Dates: start: 20110820, end: 20111021
  12. IRON SUPPLEMENT (IRON) [Concomitant]
  13. TYLENOL WITH CODEINE (PANADEINE CO) [Concomitant]

REACTIONS (3)
  - PNEUMONIA CYTOMEGALOVIRAL [None]
  - INFLUENZA LIKE ILLNESS [None]
  - PNEUMONIA [None]
